FAERS Safety Report 4622121-0 (Version None)
Quarter: 2005Q1

REPORT INFORMATION
  Report Type: 
  Country: None (occurrence: None)
  Receive Date: 20050328
  Receipt Date: 20050316
  Transmission Date: 20050727
  Serious: Yes (Other)
  Sender: FDA-Public Use
  Company Number: 2005046302

PATIENT
  Age: 13 Year
  Sex: Female

DRUGS (2)
  1. GENOTROPIN [Suspect]
     Indication: TURNER'S SYNDROME
  2. ESTROGEN NOS (ESTROGEN NOS) [Concomitant]

REACTIONS (7)
  - BONE MARROW DISORDER [None]
  - BREAST ATROPHY [None]
  - BREAST DISORDER FEMALE [None]
  - INFECTION [None]
  - LOWER LIMB DEFORMITY [None]
  - POST PROCEDURAL COMPLICATION [None]
  - X-RAY LIMB ABNORMAL [None]
